FAERS Safety Report 7998017-3 (Version None)
Quarter: 2011Q4

REPORT INFORMATION
  Report Type: 
  Country: None (occurrence: None)
  Receive Date: 20111221
  Receipt Date: 20101117
  Transmission Date: 20120403
  Serious: No
  Sender: FDA-Public Use
  Company Number: US-GLAXOSMITHKLINE-A0893028A

PATIENT
  Age: 62 Year
  Sex: Female

DRUGS (7)
  1. ASPIRIN [Concomitant]
  2. ATENOLOL [Concomitant]
  3. CENTRUM [Concomitant]
  4. CALCIUM [Concomitant]
  5. VITAMIN D [Concomitant]
  6. LOVAZA [Suspect]
     Indication: BLOOD TRIGLYCERIDES INCREASED
     Dosage: 2TAB TWICE PER DAY
     Route: 048
     Dates: start: 20070101
  7. UNKNOWN MEDICATION [Suspect]
     Dates: start: 20100601

REACTIONS (2)
  - BLOOD TRIGLYCERIDES INCREASED [None]
  - ALOPECIA [None]
